FAERS Safety Report 6657206-0 (Version None)
Quarter: 2010Q1

REPORT INFORMATION
  Report Type: 
  Country: None (occurrence: None)
  Receive Date: 20100330
  Receipt Date: 20100322
  Transmission Date: 20100710
  Serious: Yes (Hospitalization, Other)
  Sender: FDA-Public Use
  Company Number: US-TEVA-228745USA

PATIENT
  Age: 69 Year
  Sex: Female

DRUGS (7)
  1. LISINOPRIL TABLETS USP, 2.5MG, 5MG, 10MG, 20MG, 30MG, 40MG [Suspect]
     Indication: HYPERTENSION
     Route: 048
  2. OLANZAPINE [Interacting]
     Indication: BIPOLAR DISORDER
     Route: 048
  3. LITHIUM [Concomitant]
  4. ALPRAZOLAM [Concomitant]
  5. WARFARIN SODIUM [Concomitant]
  6. LEVOTHYROXINE SODIUM [Concomitant]
  7. DARIFENACIN [Concomitant]

REACTIONS (2)
  - DRUG INTERACTION [None]
  - PANCREATITIS ACUTE [None]
